FAERS Safety Report 24048630 (Version 1)
Quarter: 2024Q3

REPORT INFORMATION
  Report Type: Spontaneous
  Country: DE (occurrence: DE)
  Receive Date: 20240704
  Receipt Date: 20240704
  Transmission Date: 20241016
  Serious: Yes (Hospitalization)
  Sender: AMGEN
  Company Number: DE-AMGEN-DEUSP2024125481

PATIENT
  Sex: Female

DRUGS (1)
  1. PROLIA [Suspect]
     Active Substance: DENOSUMAB
     Indication: Osteoporosis
     Dosage: UNK UNK, Q6MO
     Route: 065
     Dates: start: 2022

REACTIONS (5)
  - Toothache [Unknown]
  - Dental restoration failure [Unknown]
  - Fatigue [Unknown]
  - Pulpitis dental [Unknown]
  - Dental implantation [Unknown]

NARRATIVE: CASE EVENT DATE: 20230101
